FAERS Safety Report 10034968 (Version 2)
Quarter: 2014Q2

REPORT INFORMATION
  Report Type: Spontaneous
  Country: IT (occurrence: IT)
  Receive Date: 20140325
  Receipt Date: 20140404
  Transmission Date: 20141212
  Serious: Yes (Hospitalization)
  Sender: FDA-Public Use
  Company Number: IT-BAYER-2014-040835

PATIENT
  Age: 74 Year
  Sex: Male

DRUGS (2)
  1. CARDIOASPIRIN [Suspect]
     Indication: CARDIOVASCULAR EVENT PROPHYLAXIS
     Dosage: DAILY DOSE 100 MG
     Route: 048
     Dates: start: 20130307, end: 20140307
  2. SIVASTIN [Concomitant]

REACTIONS (3)
  - Hemiparesis [Not Recovered/Not Resolved]
  - Pupils unequal [Not Recovered/Not Resolved]
  - Embolic stroke [Not Recovered/Not Resolved]
